FAERS Safety Report 8442946-3 (Version None)
Quarter: 2012Q2

REPORT INFORMATION
  Report Type: 
  Country: None (occurrence: None)
  Receive Date: 20120615
  Receipt Date: 20120606
  Transmission Date: 20120825
  Serious: Yes (Other)
  Sender: FDA-Public Use
  Company Number: US-JNJFOC-20120603307

PATIENT
  Sex: Female
  Weight: 61.24 kg

DRUGS (1)
  1. SIMPONI [Suspect]
     Indication: RHEUMATOID ARTHRITIS
     Route: 058
     Dates: start: 20100101

REACTIONS (7)
  - DRUG DOSE OMISSION [None]
  - DEVICE MALFUNCTION [None]
  - SWELLING [None]
  - RASH ERYTHEMATOUS [None]
  - ERYTHEMA [None]
  - MOVEMENT DISORDER [None]
  - PAIN [None]
